FAERS Safety Report 20338488 (Version 1)
Quarter: 2022Q1

REPORT INFORMATION
  Report Type: Spontaneous
  Country: HU (occurrence: HU)
  Receive Date: 20220116
  Receipt Date: 20220116
  Transmission Date: 20220423
  Serious: Yes (Hospitalization, Other)
  Sender: FDA-Public Use
  Company Number: HU-Accord-113845

PATIENT
  Age: 42 Year
  Sex: Female

DRUGS (3)
  1. TEMOZOLOMIDE [Suspect]
     Active Substance: TEMOZOLOMIDE
     Indication: Metastases to central nervous system
     Dosage: 150MG/M2 FOR 5DAYS FOR 3WEEKS UNTIL PROGRESSION
     Dates: start: 201505
  2. DABRAFENIB [Suspect]
     Active Substance: DABRAFENIB
     Indication: Metastatic malignant melanoma
     Dosage: UNK
     Route: 065
     Dates: start: 201410
  3. NIVOLUMAB [Concomitant]
     Active Substance: NIVOLUMAB
     Indication: Malignant melanoma
     Dosage: UNK
     Route: 065
     Dates: start: 201511

REACTIONS (9)
  - Off label use [Unknown]
  - Pancytopenia [Recovered/Resolved]
  - Metastatic malignant melanoma [Unknown]
  - Necrotic lymphadenopathy [Unknown]
  - Thrombocytopenia [Recovered/Resolved]
  - Metastases to central nervous system [Unknown]
  - Anaemia [Recovered/Resolved]
  - Leukopenia [Recovered/Resolved]
  - Malignant neoplasm progression [Unknown]

NARRATIVE: CASE EVENT DATE: 20150101
